FAERS Safety Report 5252386-6 (Version None)
Quarter: 2007Q1

REPORT INFORMATION
  Report Type: 
  Country: None (occurrence: None)
  Receive Date: 20070301
  Receipt Date: 20061205
  Transmission Date: 20070707
  Serious: Yes (Hospitalization, Other)
  Sender: FDA-Public Use
  Company Number: US-BRISTOL-MYERS SQUIBB COMPANY-13546056

PATIENT
  Age: 79 Year
  Sex: Male
  Weight: 85 kg

DRUGS (7)
  1. TAXOL [Suspect]
     Indication: LUNG SQUAMOUS CELL CARCINOMA STAGE UNSPECIFIED
     Route: 042
     Dates: start: 20060629, end: 20060629
  2. DECADRON [Concomitant]
     Route: 042
     Dates: start: 20060629
  3. PEPCID [Concomitant]
     Route: 042
     Dates: start: 20060629
  4. ZOFRAN [Concomitant]
     Route: 042
     Dates: start: 20060629
  5. MANNITOL [Concomitant]
     Route: 042
     Dates: start: 20060629
  6. BENADRYL [Concomitant]
     Route: 042
     Dates: start: 20060629
  7. ASPIRIN [Concomitant]
     Route: 048

REACTIONS (2)
  - CHEST PAIN [None]
  - PARAESTHESIA [None]
